FAERS Safety Report 10034000 (Version 1)
Quarter: 2014Q1

REPORT INFORMATION
  Report Type: Spontaneous
  Country: KR (occurrence: None)
  Receive Date: 20140320
  Receipt Date: 20140320
  Transmission Date: 20141002
  Serious: Yes (Hospitalization)
  Sender: FDA-Public Use
  Company Number: 2239370

PATIENT
  Age: 42 Year
  Sex: Female

DRUGS (3)
  1. PACLITAXEL [Suspect]
     Indication: THYMOMA
     Dosage: 175 MG/M 2 2 MILLIGRAM(S)/SQ. METER (CYCLICAL), INTRAVENOUS (NOT OTHERWISE SPECIFIED)??
     Route: 042
     Dates: start: 20120418
  2. IFOSFAMIDE [Suspect]
     Indication: THYMOMA
     Dosage: 2500 MG/M 2 MILLIGRAM(S)/SQ. METER (CYCLICAL), INTRAVENOUS (NOT OTHERWISE SPECIFIED)??
     Route: 042
  3. MESNA [Suspect]
     Indication: THYMOMA
     Dosage: 500 MG/M 2 MILLIGRAM(S)/SQ. METER (CYCLICAL), INTRAVENOUS (NOT OTHERWISE SPECIFIED)?
     Route: 042

REACTIONS (14)
  - Tumour lysis syndrome [None]
  - Pleural effusion [None]
  - Thymoma [None]
  - Condition aggravated [None]
  - Tachypnoea [None]
  - Oliguria [None]
  - Blood pH decreased [None]
  - Blood lactate dehydrogenase increased [None]
  - Renal failure acute [None]
  - Haemodialysis [None]
  - Hyperuricaemia [None]
  - Hyperkalaemia [None]
  - Hyperphosphataemia [None]
  - Hypocalcaemia [None]
